FAERS Safety Report 9442085 (Version 1)
Quarter: 2013Q3

REPORT INFORMATION
  Report Type: Spontaneous
  Country: US (occurrence: US)
  Receive Date: 20130806
  Receipt Date: 20130806
  Transmission Date: 20140515
  Serious: Yes (Hospitalization, Other)
  Sender: FDA-Public Use
  Company Number: US-US-EMD SERONO, INC.-7227286

PATIENT
  Age: 70 Year
  Sex: Female
  Weight: 86 kg

DRUGS (16)
  1. METFORMIN [Suspect]
     Indication: TYPE 2 DIABETES MELLITUS
     Route: 048
     Dates: start: 20020802
  2. GLIPIZIDE [Suspect]
     Indication: TYPE 2 DIABETES MELLITUS
     Route: 048
     Dates: start: 20071015
  3. CELECOXIB [Suspect]
     Indication: OSTEOARTHRITIS
     Dates: start: 20090723, end: 20100701
  4. CELECOXIB [Suspect]
     Indication: RHEUMATOID ARTHRITIS
  5. PLACEBO [Suspect]
     Indication: OSTEOARTHRITIS
     Dates: start: 20090723, end: 20100701
  6. PLACEBO [Suspect]
     Indication: RHEUMATOID ARTHRITIS
  7. NEXIUM                             /01479302/ [Concomitant]
     Indication: GASTRIC DISORDER
     Route: 048
     Dates: start: 20090723, end: 20100701
  8. LOVASTATIN [Concomitant]
     Indication: DYSLIPIDAEMIA
     Route: 048
     Dates: start: 20080625
  9. GEMFIBROZIL [Concomitant]
     Indication: DYSLIPIDAEMIA
     Route: 048
     Dates: start: 20030626
  10. ZOLOFT                             /01011401/ [Concomitant]
     Indication: DEPRESSION
     Route: 048
     Dates: start: 20090724
  11. NEURONTIN [Concomitant]
     Indication: TYPE 2 DIABETES MELLITUS
     Route: 048
     Dates: start: 20100423, end: 201107
  12. ELAVIL                             /00002202/ [Concomitant]
     Indication: ARTHRALGIA
     Route: 048
     Dates: start: 20100601
  13. ASA [Concomitant]
     Indication: CARDIOVASCULAR EVENT PROPHYLAXIS
     Route: 048
     Dates: start: 2005
  14. ACTOS                              /01460201/ [Concomitant]
     Indication: TYPE 2 DIABETES MELLITUS
     Route: 048
     Dates: start: 20081029
  15. IRON [Concomitant]
     Indication: ANAEMIA
     Route: 048
     Dates: start: 20101026
  16. IBUPROFEN [Concomitant]
     Indication: ARTHRALGIA
     Route: 048
     Dates: start: 20100701

REACTIONS (3)
  - Hyperglycaemia [Recovered/Resolved]
  - Sepsis [Unknown]
  - Acidosis [Unknown]
